FAERS Safety Report 10549656 (Version 1)
Quarter: 2014Q4

REPORT INFORMATION
  Report Type: Spontaneous
  Country: US (occurrence: None)
  Receive Date: 20141020
  Receipt Date: 20141020
  Transmission Date: 20150529
  Serious: No
  Sender: FDA-Public Use
  Company Number: AEGR000651

PATIENT
  Age: 47 Year
  Sex: Male
  Weight: 74.4 kg

DRUGS (1)
  1. JUXTAPID [Suspect]
     Active Substance: LOMITAPIDE MESYLATE
     Indication: TYPE IIA HYPERLIPIDAEMIA
     Route: 048
     Dates: start: 20140603

REACTIONS (2)
  - Flatulence [None]
  - Xanthoma [None]

NARRATIVE: CASE EVENT DATE: 20140603
